FAERS Safety Report 9227376 (Version 1)
Quarter: 2013Q1

REPORT INFORMATION
  Report Type: Spontaneous
  Country: DK (occurrence: None)
  Receive Date: 20121012
  Receipt Date: 20121012
  Transmission Date: 20140127
  Serious: Yes (Other)
  Sender: FDA-Public Use
  Company Number: 1000027216

PATIENT
  Sex: Male

DRUGS (3)
  1. LEXAPRO (ESCITALOPRAM OXALATE) [Suspect]
     Indication: DEPRESSION
     Route: 048
  2. SABRIL [Suspect]
     Indication: EPILEPSY
     Route: 048
  3. ANTI-EPILEPTIC DRUGS (ANTI-EPILEPTIC DRUGS) (ANTI-EPILEPTIC DRUGS) [Concomitant]

REACTIONS (1)
  - Suicidal ideation [None]
